FAERS Safety Report 12654584 (Version 1)
Quarter: 2016Q3

REPORT INFORMATION
  Report Type: Spontaneous
  Country: US (occurrence: None)
  Receive Date: 20160815
  Receipt Date: 20160815
  Transmission Date: 20161109
  Serious: Yes (Life-Threatening, Disabling)
  Sender: FDA-Public Use
  Company Number: None

PATIENT
  Age: 75 Year
  Sex: Female
  Weight: 67.59 kg

DRUGS (6)
  1. PREVACID [Suspect]
     Active Substance: LANSOPRAZOLE
     Indication: EROSIVE OESOPHAGITIS
     Dosage: 15 MG 42 1 A DAY BEFORE MEAL BY MOUTH??PARTIALLY
     Route: 048
     Dates: start: 2014, end: 2016
  2. GLUCOSAMINE/CHRONDROTIN [Concomitant]
  3. PROBIOTIC [Concomitant]
     Active Substance: PROBIOTICS NOS
  4. COQ10 [Concomitant]
     Active Substance: UBIDECARENONE
  5. CALCIUM [Concomitant]
     Active Substance: CALCIUM
  6. VITAMIN E [Concomitant]
     Active Substance: .ALPHA.-TOCOPHEROL

REACTIONS (63)
  - Nuchal rigidity [None]
  - Respiratory disorder [None]
  - Impulsive behaviour [None]
  - Irritability [None]
  - Abasia [None]
  - Muscle spasms [None]
  - Breast enlargement [None]
  - Confusional state [None]
  - Hypoaesthesia [None]
  - Eye pain [None]
  - Suicidal ideation [None]
  - Inflammation [None]
  - Bone pain [None]
  - Pruritus genital [None]
  - Flatulence [None]
  - Circulatory collapse [None]
  - Migraine [None]
  - Hallucination [None]
  - Dysgraphia [None]
  - Tinnitus [None]
  - Sciatica [None]
  - Weight bearing difficulty [None]
  - Muscle atrophy [None]
  - Shock [None]
  - Transient ischaemic attack [None]
  - Vertigo [None]
  - Depersonalisation/derealisation disorder [None]
  - Muscular weakness [None]
  - Breast mass [None]
  - Vaginal infection [None]
  - Nausea [None]
  - Eructation [None]
  - Abdominal discomfort [None]
  - Dysphagia [None]
  - Memory impairment [None]
  - Night sweats [None]
  - Dry eye [None]
  - Polyp [None]
  - Thyroid disorder [None]
  - Hostility [None]
  - Lethargy [None]
  - Thinking abnormal [None]
  - Agitation [None]
  - Feeling jittery [None]
  - Impaired driving ability [None]
  - Back pain [None]
  - Musculoskeletal pain [None]
  - Balance disorder [None]
  - Tremor [None]
  - Palpitations [None]
  - Abnormal dreams [None]
  - Aggression [None]
  - Paranoia [None]
  - Mental impairment [None]
  - Malaise [None]
  - Pelvic pain [None]
  - Paraesthesia [None]
  - Pollakiuria [None]
  - Chills [None]
  - Feeling abnormal [None]
  - Chest pain [None]
  - Vision blurred [None]
  - Insomnia [None]

NARRATIVE: CASE EVENT DATE: 2014
